FAERS Safety Report 4986415-1 (Version None)
Quarter: 2006Q1

REPORT INFORMATION
  Report Type: 
  Country: None (occurrence: None)
  Receive Date: 20060309
  Receipt Date: 20051031
  Transmission Date: 20060701
  Serious: Yes (Other)
  Sender: FDA-Public Use
  Company Number: 423149

PATIENT
  Age: 29 Year
  Sex: Female

DRUGS (3)
  1. ACCUTANE [Suspect]
     Indication: ACNE CYSTIC
     Dosage: ORAL
     Route: 048
     Dates: start: 20041115, end: 20041215
  2. SOTRET [Suspect]
     Indication: ACNE CYSTIC
     Dosage: ORAL
     Route: 048
  3. BIRTH CONTROL PILLS NOS (ORAL CONTRACEPTIVE NOS) [Concomitant]

REACTIONS (1)
  - BLOOD CHOLESTEROL INCREASED [None]
